FAERS Safety Report 5698235-3 (Version None)
Quarter: 2008Q2

REPORT INFORMATION
  Report Type: 
  Country: None (occurrence: None)
  Receive Date: 20080403
  Receipt Date: 20080318
  Transmission Date: 20081010
  Serious: Yes (Hospitalization)
  Sender: FDA-Public Use
  Company Number: CFNTY-206

PATIENT
  Age: 59 Year
  Sex: Male

DRUGS (2)
  1. SPECTRACEF (CEFDITOREN PIVOXIL) TABLETS [Suspect]
     Indication: RESPIRATORY TRACT INFECTION
     Dosage: 400 MG BID, ORAL
     Route: 048
  2. SUTENT [Suspect]
     Indication: RENAL CANCER METASTATIC
     Dosage: 25 MG, ORAL
     Route: 048
     Dates: start: 20071210, end: 20080110

REACTIONS (2)
  - GASTRIC ULCER [None]
  - OESOPHAGEAL ULCER [None]
